FAERS Safety Report 5342750-9 (Version None)
Quarter: 2007Q2

REPORT INFORMATION
  Report Type: 
  Country: None (occurrence: None)
  Receive Date: 20070601
  Receipt Date: 20070523
  Transmission Date: 20071010
  Serious: Yes (Life-Threatening)
  Sender: FDA-Public Use
  Company Number: JP-ABBOTT-07P-087-0369206-00

PATIENT
  Age: 61 Year
  Sex: Male

DRUGS (11)
  1. NORVIR [Suspect]
     Indication: HIV INFECTION
     Route: 048
     Dates: start: 20041215, end: 20050131
  2. KALETRA [Suspect]
     Indication: HIV INFECTION
     Route: 048
     Dates: start: 20041130, end: 20041214
  3. LAMIVUDINE [Concomitant]
     Indication: HIV INFECTION
     Route: 048
     Dates: start: 20040726, end: 20041004
  4. LAMIVUDINE [Concomitant]
     Route: 048
     Dates: start: 20041130
  5. STAVUDINE [Concomitant]
     Indication: HIV INFECTION
     Route: 048
     Dates: start: 20040726, end: 20041004
  6. STAVUDINE [Concomitant]
     Route: 048
     Dates: start: 20041130, end: 20041214
  7. STAVUDINE [Concomitant]
     Route: 048
     Dates: start: 20050201
  8. NELFINAVIR [Concomitant]
     Indication: HIV INFECTION
     Route: 048
     Dates: start: 20050201
  9. EFAVIRENZ [Concomitant]
     Indication: HIV INFECTION
     Route: 048
     Dates: start: 20040726, end: 20041004
  10. ATAZANAVIR SULFATE [Concomitant]
     Indication: HIV INFECTION
     Route: 048
     Dates: start: 20041215, end: 20050131
  11. TENOFOVIR [Concomitant]
     Indication: HIV INFECTION
     Route: 048
     Dates: start: 20041215, end: 20050131

REACTIONS (1)
  - LYMPHOMA [None]
